FAERS Safety Report 17801144 (Version 2)
Quarter: 2020Q2

REPORT INFORMATION
  Report Type: Spontaneous
  Country: US (occurrence: US)
  Receive Date: 20200519
  Receipt Date: 20200605
  Transmission Date: 20200714
  Serious: No
  Sender: FDA-Public Use
  Company Number: US-ASTRAZENECA-2020SE63671

PATIENT
  Sex: Female

DRUGS (1)
  1. BYDUREON BCISE [Suspect]
     Active Substance: EXENATIDE
     Route: 065

REACTIONS (7)
  - Intentional product misuse [Unknown]
  - Injection site mass [Not Recovered/Not Resolved]
  - Device issue [Unknown]
  - Device leakage [Unknown]
  - Injection site pain [Unknown]
  - Nausea [Recovered/Resolved]
  - Injection site haemorrhage [Recovered/Resolved]
